FAERS Safety Report 18933504 (Version 2)
Quarter: 2021Q2

REPORT INFORMATION
  Report Type: Spontaneous
  Country: MA (occurrence: MA)
  Receive Date: 20210224
  Receipt Date: 20210403
  Transmission Date: 20210717
  Serious: Yes (Other)
  Sender: FDA-Public Use
  Company Number: MA-MACLEODS PHARMACEUTICALS US LTD-MAC2021030246

PATIENT

DRUGS (2)
  1. INSULIN [Concomitant]
     Active Substance: INSULIN NOS
     Indication: DIABETES MELLITUS
     Dosage: UNK
     Route: 065
  2. METFORMIN [Suspect]
     Active Substance: METFORMIN HYDROCHLORIDE
     Indication: DIABETES MELLITUS
     Dosage: UNK, BID (DIVIDED INTO TWO DOSES)
     Route: 065

REACTIONS (6)
  - Iron deficiency [Recovering/Resolving]
  - Periodontitis [Recovering/Resolving]
  - Vitamin B12 deficiency [Recovering/Resolving]
  - Burning mouth syndrome [Recovered/Resolved]
  - Atrophic glossitis [Recovered/Resolved]
  - Normocytic anaemia [Recovering/Resolving]
